FAERS Safety Report 17026751 (Version 1)
Quarter: 2019Q4

REPORT INFORMATION
  Report Type: Spontaneous
  Country: US (occurrence: US)
  Receive Date: 20191113
  Receipt Date: 20191113
  Transmission Date: 20200122
  Serious: Yes (Death, Life-Threatening, Hospitalization, Other)
  Sender: FDA-Public Use
  Company Number: US-HIKMA PHARMACEUTICALS USA INC.-US-H14001-19-49737

PATIENT
  Age: 19 Year
  Sex: Female

DRUGS (2)
  1. PREDNISONE. [Suspect]
     Active Substance: PREDNISONE
     Indication: COLITIS ULCERATIVE
     Route: 065
  2. AZATHIOPRINE. [Suspect]
     Active Substance: AZATHIOPRINE
     Indication: COLITIS ULCERATIVE
     Route: 065

REACTIONS (8)
  - Skin necrosis [Fatal]
  - Multiple organ dysfunction syndrome [Fatal]
  - Skin exfoliation [Fatal]
  - Disseminated intravascular coagulation [Fatal]
  - Embolic stroke [Fatal]
  - Blister [Fatal]
  - Trichosporon infection [Fatal]
  - Skin erosion [Fatal]
